FAERS Safety Report 7475280-9 (Version None)
Quarter: 2011Q1

REPORT INFORMATION
  Report Type: 
  Country: None (occurrence: None)
  Receive Date: 20110302
  Receipt Date: 20100810
  Transmission Date: 20110831
  Serious: Yes (Disabling, Other)
  Sender: FDA-Public Use
  Company Number: 163-21880-10062334

PATIENT
  Age: 83 Year
  Sex: Female
  Weight: 54.6584 kg

DRUGS (3)
  1. VERAPAMIL [Concomitant]
  2. REVLIMID [Suspect]
     Indication: MULTIPLE MYELOMA
     Dosage: 15 MG, DAILY X 21 OF 28 DAY CYCLE, PO
     Route: 048
     Dates: start: 20100101
  3. VELCADE [Concomitant]

REACTIONS (3)
  - DISEASE PROGRESSION [None]
  - PANCYTOPENIA [None]
  - OSTEOMYELITIS [None]
